FAERS Safety Report 7786966-0 (Version None)
Quarter: 2011Q3

REPORT INFORMATION
  Report Type: 
  Country: None (occurrence: None)
  Receive Date: 20110929
  Receipt Date: 20110923
  Transmission Date: 20111222
  Serious: Yes (Other)
  Sender: FDA-Public Use
  Company Number: DE-PFIZER INC-2011218314

PATIENT
  Age: 60 Year

DRUGS (1)
  1. XALATAN [Suspect]

REACTIONS (2)
  - DYSPNOEA [None]
  - HYPERTENSION [None]
